FAERS Safety Report 5966828-1 (Version None)
Quarter: 2008Q4

REPORT INFORMATION
  Report Type: 
  Country: None (occurrence: None)
  Receive Date: 20081125
  Receipt Date: 20081110
  Transmission Date: 20090506
  Serious: Yes (Hospitalization, Other)
  Sender: FDA-Public Use
  Company Number: BR-B.I. PHARMACEUTICALS,INC./RIDGEFIELD-2008-DE-06690GD

PATIENT
  Age: 41 Year
  Sex: Male

DRUGS (3)
  1. NEVIRAPINE [Suspect]
     Indication: HIV INFECTION
  2. ZIDOVUDINE [Suspect]
     Indication: HIV INFECTION
  3. DIDANOSINE [Suspect]
     Indication: HIV INFECTION

REACTIONS (5)
  - ANOGENITAL WARTS [None]
  - IMMUNE RECONSTITUTION SYNDROME [None]
  - OSTEOMYELITIS [None]
  - OSTEONECROSIS [None]
  - SECONDARY SEQUESTRUM [None]
